FAERS Safety Report 11222752 (Version 1)
Quarter: 2015Q2

REPORT INFORMATION
  Report Type: Spontaneous
  Country: FR (occurrence: FR)
  Receive Date: 20150626
  Receipt Date: 20150626
  Transmission Date: 20150821
  Serious: Yes (Life-Threatening, Hospitalization)
  Sender: FDA-Public Use
  Company Number: FR-009507513-1506FRA013183

PATIENT
  Age: 89 Year
  Sex: Male

DRUGS (10)
  1. LAROXYL [Concomitant]
     Active Substance: AMITRIPTYLINE
  2. ALGESAL (DIETHYLAMINE SALICYLATE (+) MYRTECAINE) [Interacting]
     Active Substance: DIETHYLAMINE SALICYLATE\MYRTECAINE
     Indication: PAIN
     Dosage: UNKNOWN
     Route: 003
     Dates: start: 20150512, end: 20150526
  3. COVERSYL (PERINDOPRIL ARGININE) [Interacting]
     Active Substance: PERINDOPRIL
     Indication: HYPERTENSION
     Dosage: UNKNOWN
     Route: 048
     Dates: start: 2013
  4. XATRAL [Concomitant]
     Active Substance: ALFUZOSIN
  5. FUROSEMIDE. [Suspect]
     Active Substance: FUROSEMIDE
     Indication: HYPERTENSION
     Dosage: UNKNOWN
     Route: 048
  6. KARDEGIC [Concomitant]
     Active Substance: ASPIRIN LYSINE
  7. DEPAKINE [Concomitant]
     Active Substance: VALPROATE SODIUM
  8. CASODEX [Concomitant]
     Active Substance: BICALUTAMIDE
  9. NOCTAMIDE [Concomitant]
     Active Substance: LORMETAZEPAM
  10. OLMESARTAN MEDOXOMIL. [Interacting]
     Active Substance: OLMESARTAN MEDOXOMIL
     Indication: HYPERTENSION
     Dosage: UNKNOWN
     Route: 048
     Dates: start: 201406

REACTIONS (5)
  - Drug interaction [Unknown]
  - Acute kidney injury [Recovering/Resolving]
  - Hyperkalaemia [Recovered/Resolved]
  - Haemodialysis [None]
  - Atrioventricular block complete [Unknown]

NARRATIVE: CASE EVENT DATE: 201406
